FAERS Safety Report 23586215 (Version 1)
Quarter: 2024Q1

REPORT INFORMATION
  Report Type: Report from Study
  Country: US (occurrence: US)
  Receive Date: 20240301
  Receipt Date: 20240301
  Transmission Date: 20240409
  Serious: Yes (Death)
  Sender: FDA-Public Use
  Company Number: US-PFIZER INC-PV202400027758

PATIENT

DRUGS (8)
  1. BENDAMUSTINE HYDROCHLORIDE [Suspect]
     Active Substance: BENDAMUSTINE HYDROCHLORIDE
     Indication: Mantle cell lymphoma
     Dosage: UNK, CYCLIC (INDUCTION, 4-6 CYCLES, EVERY 28 DAYS)
     Route: 042
  2. BENDAMUSTINE HYDROCHLORIDE [Suspect]
     Active Substance: BENDAMUSTINE HYDROCHLORIDE
     Dosage: 90 MG/M2, CYCLIC ( DAY 1 AND 2 EVERY 28D FOR 6 CY)
     Route: 042
  3. OBINUTUZUMAB [Suspect]
     Active Substance: OBINUTUZUMAB
     Indication: Mantle cell lymphoma
     Dosage: (INDUCTION, 4-6 CYCLES, EVERY 28 DAYS)
     Route: 042
  4. OBINUTUZUMAB [Suspect]
     Active Substance: OBINUTUZUMAB
     Dosage: 100 MG, CYCLIC (D 1)
     Route: 042
  5. OBINUTUZUMAB [Suspect]
     Active Substance: OBINUTUZUMAB
     Dosage: 900 MG, CYCLIC (D 2)
     Route: 042
  6. OBINUTUZUMAB [Suspect]
     Active Substance: OBINUTUZUMAB
     Dosage: 1000 MG, CYCLIC (D8 AND 15)
     Route: 042
  7. OBINUTUZUMAB [Suspect]
     Active Substance: OBINUTUZUMAB
     Dosage: 1000 MG, CYCLIC (D1, CY 2-6)
     Route: 042
  8. OBINUTUZUMAB [Suspect]
     Active Substance: OBINUTUZUMAB
     Dosage: 1000 MG, WEEKLY; 4 DOSES INITIATED LESS THAN OR EQUAL TO 12 WKS AFTER FINAL DOSE OF BO
     Route: 042

REACTIONS (2)
  - Cardiac arrest [Fatal]
  - Sepsis [Fatal]
